FAERS Safety Report 10636458 (Version 1)
Quarter: 2014Q4

REPORT INFORMATION
  Report Type: Spontaneous
  Country: US (occurrence: US)
  Receive Date: 20141207
  Receipt Date: 20141207
  Transmission Date: 20150529
  Serious: No
  Sender: FDA-Public Use
  Company Number: US-GLAXOSMITHKLINE-A1087706A

PATIENT

DRUGS (10)
  1. ALBUTEROL NEBULIZER [Concomitant]
     Active Substance: ALBUTEROL
  2. SPIRIVA [Concomitant]
     Active Substance: TIOTROPIUM BROMIDE MONOHYDRATE
  3. FLOMAX [Concomitant]
     Active Substance: TAMSULOSIN HYDROCHLORIDE
  4. OXYGEN. [Concomitant]
     Active Substance: OXYGEN
  5. ASPIRIN. [Concomitant]
     Active Substance: ASPIRIN
  6. SINGULAIR [Concomitant]
     Active Substance: MONTELUKAST SODIUM
  7. BREO ELLIPTA [Suspect]
     Active Substance: FLUTICASONE FUROATE\VILANTEROL TRIFENATATE
     Indication: CHRONIC OBSTRUCTIVE PULMONARY DISEASE
     Route: 055
     Dates: start: 201312
  8. AMBIEN [Concomitant]
     Active Substance: ZOLPIDEM TARTRATE
  9. AMLODIPINE [Concomitant]
     Active Substance: AMLODIPINE BESYLATE
  10. OMEPRAZOLE. [Concomitant]
     Active Substance: OMEPRAZOLE

REACTIONS (1)
  - Chronic obstructive pulmonary disease [Unknown]
